FAERS Safety Report 4983252-9 (Version None)
Quarter: 2006Q2

REPORT INFORMATION
  Report Type: 
  Country: None (occurrence: None)
  Receive Date: 20060426
  Receipt Date: 20060411
  Transmission Date: 20061013
  Serious: Yes (Hospitalization)
  Sender: FDA-Public Use
  Company Number: US-AMGEN-STX175933

PATIENT
  Sex: Male

DRUGS (4)
  1. ENBREL [Suspect]
     Indication: DRUG USE FOR UNKNOWN INDICATION
  2. COUMADIN [Concomitant]
     Dates: start: 20060201
  3. VERAPAMIL [Concomitant]
     Dates: start: 20060201
  4. DIGOXIN [Concomitant]
     Dates: start: 20060201

REACTIONS (4)
  - ARTHRALGIA [None]
  - ATRIAL FIBRILLATION [None]
  - CONDITION AGGRAVATED [None]
  - CORONARY ARTERY DISEASE [None]
